FAERS Safety Report 15535232 (Version 1)
Quarter: 2018Q4

REPORT INFORMATION
  Report Type: Spontaneous
  Country: US (occurrence: US)
  Receive Date: 20181015
  Receipt Date: 20181015
  Transmission Date: 20190205
  Serious: Yes (Hospitalization)
  Sender: FDA-Public Use
  Company Number: None

PATIENT
  Age: 75 Year
  Sex: Male
  Weight: 87.1 kg

DRUGS (6)
  1. ATORVASTATIN 20 MG [Concomitant]
     Active Substance: ATORVASTATIN
  2. MONTELUKAST 10 MG [Concomitant]
     Active Substance: MONTELUKAST SODIUM
  3. AMLODIPINE 10 MG [Concomitant]
     Active Substance: AMLODIPINE BESYLATE
  4. FINASTERIDE 5 MG [Concomitant]
     Active Substance: FINASTERIDE
  5. AUGMENTIN [Suspect]
     Active Substance: AMOXICILLIN\CLAVULANATE POTASSIUM
  6. AMOXICILLIN. [Suspect]
     Active Substance: AMOXICILLIN
     Indication: SINUSITIS
     Route: 048
     Dates: start: 20180524, end: 20180603

REACTIONS (5)
  - Blood bilirubin increased [None]
  - Hepatic function abnormal [None]
  - Blood creatine phosphokinase increased [None]
  - Drug-induced liver injury [None]
  - Transaminases increased [None]

NARRATIVE: CASE EVENT DATE: 20180612
